FAERS Safety Report 9216310 (Version 1)
Quarter: 2013Q2

REPORT INFORMATION
  Report Type: Spontaneous
  Country: BR (occurrence: BR)
  Receive Date: 20130408
  Receipt Date: 20130408
  Transmission Date: 20140414
  Serious: Yes (Hospitalization, Other)
  Sender: FDA-Public Use
  Company Number: PHHY2013BR033347

PATIENT
  Age: 70 Year
  Sex: Female
  Weight: 61 kg

DRUGS (2)
  1. FORASEQ [Suspect]
     Indication: ASTHMA
     Dosage: 1 DF, BID
  2. AMLODIPINE BESILATE, HYDROCHLOROTHIAZIDE, LOSARTAN POTASSIUM [Suspect]
     Indication: BLOOD PRESSURE
     Dosage: 1 DF, DAILY (LOSARTAN 100 MG + HYDROCHLOROTIAZIDE 12,5 MG + AMLODIPINE 10 MG)
     Route: 048

REACTIONS (4)
  - Aortic aneurysm [Unknown]
  - Aortic calcification [Unknown]
  - Pain [Recovered/Resolved]
  - Pain in extremity [Not Recovered/Not Resolved]
